FAERS Safety Report 11869440 (Version 3)
Quarter: 2016Q1

REPORT INFORMATION
  Report Type: Report from Study
  Country: US (occurrence: US)
  Receive Date: 20151227
  Receipt Date: 20160302
  Transmission Date: 20160526
  Serious: No
  Sender: FDA-Public Use
  Company Number: US-AMGEN-USASL2015137364

PATIENT
  Age: 50 Year
  Sex: Male

DRUGS (1)
  1. ENBREL [Suspect]
     Active Substance: ETANERCEPT
     Indication: RHEUMATOID ARTHRITIS
     Dosage: 50 MG, WEEKLY
     Route: 065
     Dates: start: 20151124, end: 20151215

REACTIONS (11)
  - Foot fracture [Unknown]
  - Impaired healing [Unknown]
  - Localised infection [Unknown]
  - Skin discolouration [Not Recovered/Not Resolved]
  - Liver function test increased [Not Recovered/Not Resolved]
  - Wound [Recovering/Resolving]
  - Injury [Unknown]
  - Blood creatinine increased [Unknown]
  - Weight bearing difficulty [Unknown]
  - Fall [Unknown]
  - Foot operation [Unknown]

NARRATIVE: CASE EVENT DATE: 201512
